FAERS Safety Report 6595578-6 (Version None)
Quarter: 2010Q1

REPORT INFORMATION
  Report Type: 
  Country: None (occurrence: None)
  Receive Date: 20100223
  Receipt Date: 20100211
  Transmission Date: 20100710
  Serious: Yes (Other)
  Sender: FDA-Public Use
  Company Number: CA-JNJFOC-20100110469

PATIENT
  Sex: Female

DRUGS (6)
  1. SIMPONI [Suspect]
     Indication: DRUG USE FOR UNKNOWN INDICATION
     Route: 058
  2. INSULIN [Concomitant]
  3. METHOTREXATE [Concomitant]
  4. SALAZOPYRINE [Concomitant]
  5. ARAVA [Concomitant]
  6. LYRICA [Concomitant]

REACTIONS (4)
  - ASTHENIA [None]
  - BACK PAIN [None]
  - FALL [None]
  - PAIN IN EXTREMITY [None]
